FAERS Safety Report 8106739 (Version 2)
Quarter: 2014Q1

REPORT INFORMATION
  Report Type: Spontaneous
  Country: US (occurrence: US)
  Receive Date: 20110825
  Receipt Date: 20140219
  Transmission Date: 20141002
  Serious: Yes (Other)
  Sender: FDA-Public Use
  Company Number: US-BAYER-2011-075071

PATIENT
  Age: 29 Year
  Sex: Female

DRUGS (8)
  1. YAZ [Suspect]
     Dosage: UNK
     Route: 048
  2. YASMIN [Suspect]
     Route: 048
  3. PEPCID [Concomitant]
  4. DILAUDID [Concomitant]
     Dosage: AS NEEDED
  5. ZOFRAN [Concomitant]
     Dosage: 4 MG, EVERY 6 HOURS PRN
     Route: 042
  6. LEVAQUIN [Concomitant]
     Dosage: 500 MG, DAILY
     Route: 042
  7. PERCOCET [Concomitant]
     Dosage: 5/325 EVERY 4 HOURS AS NEEDED
  8. PROTONIX [Concomitant]
     Dosage: 40 MG, UNK

REACTIONS (3)
  - Thrombosis [None]
  - Biliary dyskinesia [None]
  - Cholecystitis chronic [None]
